FAERS Safety Report 4939364-9 (Version None)
Quarter: 2006Q1

REPORT INFORMATION
  Report Type: 
  Country: None (occurrence: None)
  Receive Date: 20060306
  Receipt Date: 20060224
  Transmission Date: 20060701
  Serious: Yes (Life-Threatening, Hospitalization)
  Sender: FDA-Public Use
  Company Number: 2006-02-0778

PATIENT
  Age: 53 Year
  Sex: Male
  Weight: 72 kg

DRUGS (9)
  1. PEG-INTRON [Suspect]
     Indication: HEPATITIS C
     Dosage: 100 MCG QWK SUBCUTANEOUS
     Route: 058
     Dates: start: 20050131, end: 20060203
  2. RIBAVIRIN [Suspect]
     Indication: HEPATITIS C
     Dosage: 800 MG QD ORAL
     Route: 048
     Dates: start: 20050131, end: 20060203
  3. PHENOL [Suspect]
     Indication: NEOPLASM
     Dosage: INTRALESIONAL
     Route: 026
     Dates: start: 20060204, end: 20060204
  4. SPIRONOLACTONE [Concomitant]
  5. FUROSEMIDE [Concomitant]
  6. OMEPRAZOLE [Concomitant]
  7. PROPRANOLOL [Concomitant]
  8. ISONIAZID [Concomitant]
  9. LACTULOSE [Concomitant]

REACTIONS (2)
  - HEPATIC FAILURE [None]
  - NEUTROPENIA [None]
